FAERS Safety Report 19056228 (Version 1)
Quarter: 2021Q1

REPORT INFORMATION
  Report Type: Spontaneous
  Country: US (occurrence: US)
  Receive Date: 20210325
  Receipt Date: 20210325
  Transmission Date: 20210420
  Serious: No
  Sender: FDA-Public Use
  Company Number: None

PATIENT
  Age: 41 Year
  Sex: Male

DRUGS (2)
  1. CASIRIVIMAB (INV?CASIRIVIMAB) 120MG/ML INJ,SOLN [Suspect]
     Active Substance: CASIRIVIMAB
     Indication: COVID-19
     Route: 042
     Dates: start: 20210324, end: 20210324
  2. IMDEVIMAB (INV?IMDEVIMAB 120MG/ML INJ,SOLN) [Suspect]
     Active Substance: IMDEVIMAB
     Indication: COVID-19
     Route: 042
     Dates: start: 20210324, end: 20210324

REACTIONS (3)
  - Dizziness postural [None]
  - Blood pressure increased [None]
  - Cough [None]

NARRATIVE: CASE EVENT DATE: 20210324
